FAERS Safety Report 8356346 (Version 6)
Quarter: 2014Q1

REPORT INFORMATION
  Report Type: Spontaneous
  Country: US (occurrence: US)
  Receive Date: 20120126
  Receipt Date: 20140314
  Transmission Date: 20141002
  Serious: Yes (Other)
  Sender: FDA-Public Use
  Company Number: US-JHP PHARMACEUTICALS, LLC-JHP201200025

PATIENT
  Age: 47 Year
  Sex: Female

DRUGS (1)
  1. DANTRIUM [Suspect]
     Indication: CEREBRAL VASOCONSTRICTION
     Dosage: 1.25 MG/KG EVERY 6 HOURS, TOTAL=2086 MG
     Route: 042

REACTIONS (6)
  - Acute respiratory failure [Recovered/Resolved]
  - Herpes zoster [Recovered/Resolved]
  - Nausea [Recovered/Resolved]
  - Vomiting [Recovered/Resolved]
  - Infusion site extravasation [Recovered/Resolved]
  - Off label use [Recovered/Resolved]
